FAERS Safety Report 4742035-5 (Version None)
Quarter: 2005Q3

REPORT INFORMATION
  Report Type: 
  Country: None (occurrence: None)
  Receive Date: 20050727
  Receipt Date: 20050105
  Transmission Date: 20060218
  Serious: Yes (Hospitalization)
  Sender: FDA-Public Use
  Company Number: PAGL/05/02/LIT

PATIENT
  Age: 90 Year
  Sex: Male
  Weight: 72 kg

DRUGS (15)
  1. PANGLOBULIN [Suspect]
     Indication: GAMMOPATHY
     Dosage: 1 G/KG B.W., I.V.
     Route: 042
  2. PANGLOBULIN [Suspect]
     Indication: RENAL DISORDER
     Dosage: 1 G/KG B.W., I.V.
     Route: 042
  3. ALLOPURINOL [Concomitant]
  4. AMLODIPINE [Concomitant]
  5. CILOSTAZOL [Concomitant]
  6. DIGOXIN [Concomitant]
  7. METOLAZONE [Concomitant]
  8. TORSEMIDE (TORASEMIDE) [Concomitant]
  9. PREDNISONE [Concomitant]
  10. RISEDRONATE (RISEDRONATE SODIUM) [Concomitant]
  11. WARFARIN SODIUM [Concomitant]
  12. ESCITALOPRAM (SSRI) [Concomitant]
  13. METOPROLOL XL (METOPROLOL) [Concomitant]
  14. TRAZODONE (TRAZODONE) [Concomitant]
  15. FLUTICASONE/SALMETEROL (OTHER ANTI-ASTHMATICS, INHALANTS) [Concomitant]

REACTIONS (1)
  - RENAL FAILURE ACUTE [None]
